FAERS Safety Report 9454260 (Version 1)
Quarter: 2013Q3

REPORT INFORMATION
  Report Type: Spontaneous
  Country: US (occurrence: None)
  Receive Date: 20130807
  Receipt Date: 20130807
  Transmission Date: 20140515
  Serious: Yes (Other)
  Sender: FDA-Public Use
  Company Number: DSU-2013-04155

PATIENT
  Age: 58 Year
  Sex: Female
  Weight: 108.86 kg

DRUGS (5)
  1. WELCHOL [Suspect]
     Indication: DIARRHOEA
     Route: 048
  2. DIOVAN (VALSARTAN) (320 MILLIGRAM) (VALSARTAN) [Concomitant]
  3. BISOPROLOL (BISOPROLOL) (BISOPROLOL) [Concomitant]
  4. METFORMIN (METFORMIN) (METFORMIN) [Concomitant]
  5. PANTOPRAZOLE [Concomitant]

REACTIONS (2)
  - Off label use [None]
  - Breast cancer [None]
